FAERS Safety Report 26133965 (Version 1)
Quarter: 2025Q4

REPORT INFORMATION
  Report Type: Spontaneous
  Country: NP (occurrence: NP)
  Receive Date: 20251209
  Receipt Date: 20251209
  Transmission Date: 20260117
  Serious: Yes (Hospitalization, Other)
  Sender: STRIDES
  Company Number: NP-STRIDES ARCOLAB LIMITED-2025SP015199

PATIENT
  Age: 24 Year
  Sex: Male

DRUGS (1)
  1. ACARBOSE [Suspect]
     Active Substance: ACARBOSE
     Indication: Product used for unknown indication
     Dosage: 25 MILLIGRAM
     Route: 048

REACTIONS (5)
  - Blood pressure decreased [Recovered/Resolved]
  - Hypoglycaemia [Recovered/Resolved]
  - Renal impairment [Recovered/Resolved]
  - White blood cell count increased [Recovered/Resolved]
  - Intentional overdose [Unknown]
